FAERS Safety Report 22174025 (Version 1)
Quarter: 2023Q2

REPORT INFORMATION
  Report Type: Spontaneous
  Country: US (occurrence: US)
  Receive Date: 20230405
  Receipt Date: 20230405
  Transmission Date: 20230721
  Serious: No
  Sender: FDA-Public Use
  Company Number: US-Santen Inc-2023-USA-001253

PATIENT
  Sex: Female

DRUGS (2)
  1. FLAREX [Suspect]
     Active Substance: FLUOROMETHOLONE ACETATE
     Indication: Product used for unknown indication
     Route: 047
  2. Artificial tears [Concomitant]
     Indication: Dry eye

REACTIONS (4)
  - Vision blurred [Not Recovered/Not Resolved]
  - Nervousness [Not Recovered/Not Resolved]
  - Eye irritation [Unknown]
  - Eye pain [Unknown]

NARRATIVE: CASE EVENT DATE: 20230204
